FAERS Safety Report 23947056 (Version 1)
Quarter: 2024Q2

REPORT INFORMATION
  Report Type: Spontaneous
  Country: HU (occurrence: HU)
  Receive Date: 20240606
  Receipt Date: 20240606
  Transmission Date: 20240716
  Serious: Yes (Other)
  Sender: FDA-Public Use
  Company Number: HU-002147023-NVSC2024HU116464

PATIENT
  Age: 70 Year
  Sex: Female

DRUGS (4)
  1. EVEROLIMUS [Suspect]
     Active Substance: EVEROLIMUS
     Indication: Breast neoplasm
     Dosage: UNK
     Route: 065
     Dates: start: 20230912
  2. EXEMESTANE [Suspect]
     Active Substance: EXEMESTANE
     Indication: Breast neoplasm
     Dosage: UNK
     Route: 065
     Dates: start: 20230912, end: 202311
  3. XGEVA [Concomitant]
     Active Substance: DENOSUMAB
     Indication: Breast neoplasm
     Dosage: UNK
     Route: 065
     Dates: start: 20230912
  4. TAMOXIFEN [Concomitant]
     Active Substance: TAMOXIFEN
     Indication: Breast neoplasm
     Dosage: UNK
     Route: 065
     Dates: start: 202311

REACTIONS (2)
  - Metastases to liver [Unknown]
  - Chest discomfort [Unknown]

NARRATIVE: CASE EVENT DATE: 20230101
